FAERS Safety Report 9434152 (Version 2)
Quarter: 2013Q3

REPORT INFORMATION
  Report Type: Spontaneous
  Country: IN (occurrence: IN)
  Receive Date: 20130801
  Receipt Date: 20130806
  Transmission Date: 20140515
  Serious: Yes (Hospitalization, Other)
  Sender: FDA-Public Use
  Company Number: IN-ROCHE-1254267

PATIENT
  Sex: Male

DRUGS (3)
  1. XELODA [Suspect]
     Indication: COLON CANCER
     Dosage: DOSE : 3/0/3
     Route: 048
     Dates: start: 20130703, end: 20130712
  2. HERCLON [Suspect]
     Indication: PRODUCT USED FOR UNKNOWN INDICATION
     Route: 065
  3. OXALIPLATIN [Suspect]
     Indication: PRODUCT USED FOR UNKNOWN INDICATION
     Route: 065

REACTIONS (1)
  - Colitis [Recovered/Resolved]
